FAERS Safety Report 10077638 (Version 2)
Quarter: 2014Q2

REPORT INFORMATION
  Report Type: Spontaneous
  Country: US (occurrence: US)
  Receive Date: 20140414
  Receipt Date: 20140414
  Transmission Date: 20141212
  Serious: No
  Sender: FDA-Public Use
  Company Number: US-BANPHARM-20142092

PATIENT
  Age: 41 Year
  Sex: Male

DRUGS (1)
  1. ALEVE LIQUID GELS 220 MG [Suspect]
     Indication: HEADACHE
     Dosage: 1 DF, QD,
     Route: 048
     Dates: start: 20140126, end: 20140127

REACTIONS (2)
  - Lip swelling [Recovered/Resolved]
  - Drug ineffective [Unknown]
